FAERS Safety Report 18868465 (Version 2)
Quarter: 2021Q1

REPORT INFORMATION
  Report Type: Spontaneous
  Country: US (occurrence: US)
  Receive Date: 20210209
  Receipt Date: 20210216
  Transmission Date: 20210420
  Serious: Yes (Hospitalization)
  Sender: FDA-Public Use
  Company Number: US-BIOVITRUM-2021US1204

PATIENT
  Age: 1 Year
  Sex: Male

DRUGS (4)
  1. SYNAGIS [Suspect]
     Active Substance: PALIVIZUMAB
     Indication: ANTIVIRAL PROPHYLAXIS
     Route: 030
     Dates: start: 20201201
  2. SYNAGIS [Suspect]
     Active Substance: PALIVIZUMAB
     Indication: WISKOTT-ALDRICH SYNDROME
  3. SYNAGIS [Suspect]
     Active Substance: PALIVIZUMAB
     Indication: ECZEMA INFANTILE
  4. SYNAGIS [Suspect]
     Active Substance: PALIVIZUMAB
     Indication: GRAFT VERSUS HOST DISEASE

REACTIONS (2)
  - Pyrexia [Unknown]
  - Off label use [Not Recovered/Not Resolved]

NARRATIVE: CASE EVENT DATE: 20201201
